FAERS Safety Report 9238263 (Version 1)
Quarter: 2013Q2

REPORT INFORMATION
  Report Type: Spontaneous
  Country: US (occurrence: None)
  Receive Date: 20130415
  Receipt Date: 20130415
  Transmission Date: 20140414
  Serious: Yes (Hospitalization)
  Sender: FDA-Public Use
  Company Number: ACO_34561_2013

PATIENT
  Age: 64 Year
  Sex: Male

DRUGS (31)
  1. AMPYRA (DALFAMPRIDINE) TABLET, 10MG [Suspect]
     Indication: PRODUCT USED FOR UNKNOWN INDICATION
     Route: 048
  2. NITROFURANTOIN [Suspect]
     Indication: URINARY TRACT INFECTION
     Route: 048
  3. HYDROCHLOROTHIAZIDE [Suspect]
  4. NIFEDICAL XL (NIFEDIPINE) [Concomitant]
  5. SENNA-GEN (SENNA ALEXANDRINA) [Concomitant]
  6. NAMENDA (MEMANTINE HYDROCHLORDIE) [Concomitant]
  7. METHYLPHENIDATE (METHYPHENIDATE HYDROCHLORIDE) [Concomitant]
  8. LISINOPRIL (LISINOPRIL) [Concomitant]
  9. SINGULAIR [Concomitant]
  10. RISPERDAL (RISPERIDONE) [Concomitant]
  11. TAMSULOSIN HCL PDRX (TAMSULOSIN HYDROCHLORIDE) [Concomitant]
  12. PRAVASTATIN (PRAVASTATIN SODIUM) [Concomitant]
  13. METOFRMIN ER (METFORMIN HYDROCHLORIDE) [Concomitant]
  14. DOCUSATE SODIUM (DOCUSATE SODIUM) [Concomitant]
  15. FLONASE (ALENDRONATE SODIUM) [Concomitant]
  16. FOSAMAX (ALENDRONATE SODIUM) [Concomitant]
  17. OMEPRAZOLE (OMEPRAZOLE) [Concomitant]
  18. PAROXETINE HCL (PAROXETINE HYDROCHLORIDE) [Concomitant]
  19. BUSPAR (BUSPIRONE HYDROCHLORIDE) [Concomitant]
  20. UREA C (UREA) [Concomitant]
  21. KETOCONAZOLE (KETOCONAZOLE) [Concomitant]
  22. CO Q-10 (UBIDECARENONE) [Concomitant]
  23. CALCIUM +D (CALCIUM, ERGOCALCIFEROL) [Concomitant]
  24. VITAMIN D3 (COLECALCIFEROL) [Concomitant]
  25. FINACEA (AZELAIC ACID) [Concomitant]
  26. METROGEL (METRONIDAZOLE) GEL, 1% [Concomitant]
  27. MIRALAX [Concomitant]
  28. WELLBUTRIN XL (BUPROPION HYDROCHLORIDE) [Concomitant]
  29. LORATIDINE [Concomitant]
  30. VITAMIN E (TOCOPHERYL ACETATE) [Concomitant]
  31. OTHER THERAPEUTIC PRODUCTS [Suspect]

REACTIONS (4)
  - Cellulitis [None]
  - Vasculitis [None]
  - Fall [None]
  - Urinary tract infection [None]
